FAERS Safety Report 5882044-6 (Version None)
Quarter: 2008Q3

REPORT INFORMATION
  Report Type: 
  Country: None (occurrence: None)
  Receive Date: 20080912
  Receipt Date: 20080721
  Transmission Date: 20090109
  Serious: No
  Sender: FDA-Public Use
  Company Number: US-ABBOTT-08P-163-0465082-00

PATIENT
  Sex: Male
  Weight: 83.99 kg

DRUGS (4)
  1. HUMIRA [Suspect]
     Indication: CROHN'S DISEASE
     Route: 050
     Dates: start: 20080401
  2. IRON [Concomitant]
     Indication: MINERAL SUPPLEMENTATION
     Route: 048
  3. BALSALAZIDE DISODIUM [Concomitant]
     Indication: CROHN'S DISEASE
  4. ASTROTHIENE [Concomitant]
     Indication: CROHN'S DISEASE

REACTIONS (1)
  - ACCIDENTAL EXPOSURE [None]
